FAERS Safety Report 6995984-1 (Version None)
Quarter: 2010Q3

REPORT INFORMATION
  Report Type: 
  Country: None (occurrence: None)
  Receive Date: 20100918
  Receipt Date: 20081211
  Transmission Date: 20110219
  Serious: No
  Sender: FDA-Public Use
  Company Number: US-WYE-H07213908

PATIENT

DRUGS (3)
  1. AMIODARONE HCL [Suspect]
  2. WARFARIN SODIUM [Interacting]
  3. PLAVIX [Interacting]

REACTIONS (2)
  - DIZZINESS [None]
  - DRUG INTERACTION [None]
